FAERS Safety Report 26104420 (Version 3)
Quarter: 2025Q4

REPORT INFORMATION
  Report Type: Spontaneous
  Country: US (occurrence: US)
  Receive Date: 20251130
  Receipt Date: 20251231
  Transmission Date: 20260117
  Serious: No
  Sender: SANOFI AVENTIS
  Company Number: US-SANOFI-02734463

PATIENT
  Age: 64 Year
  Sex: Female

DRUGS (1)
  1. LANTUS SOLOSTAR [Suspect]
     Active Substance: INSULIN GLARGINE
     Indication: Type 2 diabetes mellitus
     Dosage: 34 - 45 UNITS QD
     Route: 065
     Dates: start: 2004

REACTIONS (4)
  - Injection site pain [Unknown]
  - Device mechanical issue [Unknown]
  - Dizziness [Unknown]
  - Product storage error [Unknown]
